FAERS Safety Report 23240149 (Version 6)
Quarter: 2024Q1

REPORT INFORMATION
  Report Type: Spontaneous
  Country: US (occurrence: US)
  Receive Date: 20231129
  Receipt Date: 20240327
  Transmission Date: 20240410
  Serious: No
  Sender: FDA-Public Use
  Company Number: US-Blueprint Medicines Corporation-SP-US-2023-001896

PATIENT
  Sex: Female

DRUGS (7)
  1. AYVAKIT [Suspect]
     Active Substance: AVAPRITINIB
     Indication: Systemic mastocytosis
     Route: 048
     Dates: start: 20231016
  2. AYVAKIT [Suspect]
     Active Substance: AVAPRITINIB
     Indication: Indolent systemic mastocytosis
     Route: 065
  3. AYVAKIT [Suspect]
     Active Substance: AVAPRITINIB
     Indication: Haematopoietic neoplasm
     Route: 048
     Dates: start: 20231016
  4. AYVAKIT [Suspect]
     Active Substance: AVAPRITINIB
     Route: 065
     Dates: start: 20240123
  5. AYVAKIT [Suspect]
     Active Substance: AVAPRITINIB
     Route: 048
     Dates: start: 20231016
  6. AYVAKIT [Suspect]
     Active Substance: AVAPRITINIB
     Dosage: TAKE ONE 25MG TABLET AND ONE 50MG TABLET
     Route: 065
     Dates: start: 20231016
  7. AYVAKIT [Suspect]
     Active Substance: AVAPRITINIB
     Dosage: TAKE ONE 25MG TABLET AND ONE 50MG TABLET
     Route: 065
     Dates: start: 20231016

REACTIONS (6)
  - Visual impairment [Not Recovered/Not Resolved]
  - Abnormal dreams [Unknown]
  - Fatigue [Unknown]
  - Drug ineffective [Unknown]
  - Inappropriate schedule of product administration [Unknown]
  - Incorrect dose administered [Unknown]
